FAERS Safety Report 16118676 (Version 1)
Quarter: 2019Q1

REPORT INFORMATION
  Report Type: Spontaneous
  Country: FR (occurrence: FR)
  Receive Date: 20190326
  Receipt Date: 20190326
  Transmission Date: 20190418
  Serious: Yes (Hospitalization)
  Sender: FDA-Public Use
  Company Number: FR-JNJFOC-20190326857

PATIENT
  Age: 32 Year
  Sex: Female

DRUGS (2)
  1. RISPERDAL [Suspect]
     Active Substance: RISPERIDONE
     Indication: BRIEF PSYCHOTIC DISORDER WITH MARKED STRESSORS
     Route: 048
     Dates: start: 2006
  2. VALIUM [Concomitant]
     Active Substance: DIAZEPAM
     Indication: BRIEF PSYCHOTIC DISORDER WITH MARKED STRESSORS
     Route: 048
     Dates: start: 2014

REACTIONS (4)
  - Product use in unapproved indication [Unknown]
  - Pre-eclampsia [Recovered/Resolved]
  - Off label use [Unknown]
  - Exposure during pregnancy [Unknown]

NARRATIVE: CASE EVENT DATE: 2006
